FAERS Safety Report 4606235-7 (Version None)
Quarter: 2005Q1

REPORT INFORMATION
  Report Type: 
  Country: None (occurrence: None)
  Receive Date: 20050311
  Receipt Date: 20050218
  Transmission Date: 20050727
  Serious: Yes (Hospitalization)
  Sender: FDA-Public Use
  Company Number: FR-ABBOTT-05P-056-0291557-00

PATIENT
  Age: 49 Year
  Sex: Male
  Weight: 55 kg

DRUGS (3)
  1. KALETRA [Suspect]
     Indication: HIV INFECTION
     Route: 048
     Dates: start: 20040824, end: 20050115
  2. LIPANTHYL [Suspect]
     Indication: HYPERLIPIDAEMIA
     Route: 048
     Dates: end: 20050115
  3. LAMIVUDINE AND ZIDOVUDINE [Suspect]
     Indication: HIV INFECTION
     Route: 048
     Dates: start: 20040824, end: 20050115

REACTIONS (1)
  - MYOCARDIAL INFARCTION [None]
